FAERS Safety Report 14260072 (Version 1)
Quarter: 2017Q4

REPORT INFORMATION
  Report Type: Spontaneous
  Country: CH (occurrence: CH)
  Receive Date: 20171207
  Receipt Date: 20171207
  Transmission Date: 20180321
  Serious: Yes (Life-Threatening, Hospitalization)
  Sender: FDA-Public Use
  Company Number: CH-PURDUE-GBR-2017-0051169

PATIENT
  Age: 67 Year
  Sex: Female

DRUGS (31)
  1. SIMVASTATIN. [Concomitant]
     Active Substance: SIMVASTATIN
  2. VITAMIN B12 [Concomitant]
     Active Substance: CYANOCOBALAMIN
  3. BECOZYME                           /01274401/ [Concomitant]
  4. NOZINAN                            /00038601/ [Concomitant]
     Active Substance: LEVOMEPROMAZINE
  5. MST CONTINUS [Suspect]
     Active Substance: MORPHINE SULFATE
     Indication: PRODUCT USED FOR UNKNOWN INDICATION
     Dosage: 10 MG, TID
     Route: 048
     Dates: start: 20170908, end: 20170911
  6. MST CONTINUS [Suspect]
     Active Substance: MORPHINE SULFATE
     Dosage: 20 MG, BID
     Route: 048
     Dates: start: 20170906, end: 20170908
  7. EZETROL [Concomitant]
     Active Substance: EZETIMIBE
  8. MOVICOL [Concomitant]
     Active Substance: POLYETHYLENE GLYCOL 3350\POTASSIUM CHLORIDE\SODIUM BICARBONATE\SODIUM CHLORIDE
     Dosage: UNK, PRN
  9. PIPERACILLIN AND TAZOBACTAM [Concomitant]
     Active Substance: PIPERACILLIN SODIUM\TAZOBACTAM SODIUM
     Indication: PNEUMONIA
  10. MORPHINE HYDROCHLORIDE [Suspect]
     Active Substance: MORPHINE HYDROCHLORIDE
     Dosage: UNK, PRN
     Route: 040
     Dates: end: 20170906
  11. CALCIMAGON D3 [Concomitant]
     Active Substance: CALCIUM\CHOLECALCIFEROL
  12. MORPHINE HYDROCHLORIDE [Suspect]
     Active Substance: MORPHINE HYDROCHLORIDE
     Indication: OSTEOARTHRITIS
     Dosage: 5 MG, [3X/DAY AS NEEDED]
     Route: 040
     Dates: end: 20170910
  13. PURSANA [Concomitant]
     Active Substance: FIG FRUIT OIL\SORBITOL
  14. IMPORTAL [Concomitant]
     Active Substance: LACTITOL
     Dosage: UNK, PRN
  15. MORPHINE HYDROCHLORIDE [Suspect]
     Active Substance: MORPHINE HYDROCHLORIDE
     Indication: ARTHRALGIA
     Dosage: 1 DF, Q4H [5 MG STRENGTH]
     Route: 040
     Dates: end: 20170906
  16. CLEXANE [Concomitant]
     Active Substance: ENOXAPARIN SODIUM
  17. DAFALGAN [Concomitant]
     Active Substance: ACETAMINOPHEN
     Indication: ARTHRALGIA
  18. EUTHYROX [Concomitant]
     Active Substance: LEVOTHYROXINE SODIUM
  19. XANAX [Concomitant]
     Active Substance: ALPRAZOLAM
     Dosage: UNK, PRN
  20. VENTOLIN [Concomitant]
     Active Substance: ALBUTEROL SULFATE
     Dosage: UNK, PRN
  21. TELEBRIX GASTRO [Concomitant]
     Dosage: 20 ML, UNK
     Dates: start: 20170910, end: 20170910
  22. BELOC ZOK [Concomitant]
     Active Substance: METOPROLOL SUCCINATE
  23. DAFALGAN [Concomitant]
     Active Substance: ACETAMINOPHEN
     Indication: OSTEOARTHRITIS
     Dosage: 1 G, TID
  24. BENERVA [Concomitant]
     Active Substance: THIAMINE
  25. NEXIUM [Concomitant]
     Active Substance: ESOMEPRAZOLE MAGNESIUM
  26. ZOLPIDEM [Concomitant]
     Active Substance: ZOLPIDEM\ZOLPIDEM TARTRATE
     Dosage: UNK, PRN
  27. ESCITALOPRAM [Concomitant]
     Active Substance: ESCITALOPRAM OXALATE
  28. TORASEMIDE [Concomitant]
     Active Substance: TORSEMIDE
  29. ACCUPAQUE [Suspect]
     Active Substance: IOHEXOL
     Indication: PRODUCT USED FOR UNKNOWN INDICATION
     Dosage: 120 ML, UNK
     Route: 040
     Dates: start: 20170910, end: 20170910
  30. FOLIC ACID. [Concomitant]
     Active Substance: FOLIC ACID
  31. ALDACTONE [Concomitant]
     Active Substance: SPIRONOLACTONE

REACTIONS (5)
  - Accidental overdose [Recovered/Resolved]
  - Respiratory acidosis [Unknown]
  - Acute kidney injury [Recovered/Resolved]
  - Tachypnoea [Unknown]
  - Respiratory distress [Unknown]

NARRATIVE: CASE EVENT DATE: 20170911
